FAERS Safety Report 6022728-2 (Version None)
Quarter: 2008Q4

REPORT INFORMATION
  Report Type: 
  Country: None (occurrence: None)
  Receive Date: 20081223
  Receipt Date: 20081219
  Transmission Date: 20090506
  Serious: Yes (Death)
  Sender: FDA-Public Use
  Company Number: 2008JP005860

PATIENT
  Age: 85 Year
  Sex: 0

DRUGS (3)
  1. FUNGUARD(MICAFUNGIN) INJECTION [Suspect]
     Dosage: 100 MG,  /D, IV DRIP
     Route: 041
     Dates: start: 20080905, end: 20080912
  2. CARBENIN (BETAMIPRON, PANIPENEM) INJECTION [Concomitant]
  3. CEFTAZIDIME [Concomitant]

REACTIONS (1)
  - DEATH [None]
